FAERS Safety Report 9507686 (Version 4)
Quarter: 2015Q1

REPORT INFORMATION
  Report Type: Spontaneous
  Country: US (occurrence: US)
  Receive Date: 20130909
  Receipt Date: 20150218
  Transmission Date: 20150721
  Serious: Yes (Death, Hospitalization, Disabling, Other)
  Sender: FDA-Public Use
  Company Number: US-SANOFI-AVENTIS-2013SA088398

PATIENT
  Age: 48 Year
  Sex: Female

DRUGS (11)
  1. PLAVIX [Suspect]
     Active Substance: CLOPIDOGREL BISULFATE
     Indication: CEREBROVASCULAR ACCIDENT
     Route: 048
     Dates: start: 20040902, end: 20051111
  2. LASIX [Concomitant]
     Active Substance: FUROSEMIDE
  3. LOPRESSOR [Concomitant]
     Active Substance: METOPROLOL TARTRATE
  4. COUMADIN [Concomitant]
     Active Substance: WARFARIN SODIUM
     Dates: start: 200411
  5. FOLIC ACID. [Concomitant]
     Active Substance: FOLIC ACID
  6. PREVACID [Concomitant]
     Active Substance: LANSOPRAZOLE
  7. KEPPRA [Concomitant]
     Active Substance: LEVETIRACETAM
     Dosage: 2X5 DAYS
  8. TORADOL [Concomitant]
     Active Substance: KETOROLAC TROMETHAMINE
  9. LORAZEPAM. [Concomitant]
     Active Substance: LORAZEPAM
  10. LISINOPRIL. [Concomitant]
     Active Substance: LISINOPRIL
  11. PLAVIX [Suspect]
     Active Substance: CLOPIDOGREL BISULFATE
     Indication: BRAIN INJURY
     Route: 048
     Dates: start: 20040902, end: 20051111

REACTIONS (6)
  - Haemorrhage intracranial [Fatal]
  - Injury [Fatal]
  - Pain [Fatal]
  - Coma [Unknown]
  - Cerebrovascular accident [Fatal]
  - Physical disability [Unknown]

NARRATIVE: CASE EVENT DATE: 20051111
